FAERS Safety Report 9100164 (Version 3)
Quarter: 2013Q3

REPORT INFORMATION
  Report Type: Spontaneous
  Country: DK (occurrence: JP)
  Receive Date: 20130214
  Receipt Date: 20130925
  Transmission Date: 20140515
  Serious: Yes (Hospitalization)
  Sender: FDA-Public Use
  Company Number: JP-FRI-1000042573

PATIENT
  Age: 0 Day
  Sex: Female

DRUGS (4)
  1. LEXAPRO [Suspect]
     Dosage: 20 MG
     Route: 064
     Dates: end: 20121120
  2. REMERON [Concomitant]
     Route: 064
  3. RHYTHMY [Concomitant]
     Route: 064
  4. MYSLEE [Concomitant]
     Route: 064

REACTIONS (2)
  - Drug withdrawal syndrome neonatal [Recovered/Resolved]
  - Foetal exposure during pregnancy [Recovered/Resolved]
